FAERS Safety Report 6262329-4 (Version None)
Quarter: 2009Q3

REPORT INFORMATION
  Report Type: 
  Country: None (occurrence: None)
  Receive Date: 20090709
  Receipt Date: 20090630
  Transmission Date: 20100115
  Serious: Yes (Other)
  Sender: FDA-Public Use
  Company Number: PHBS2008BR06677

PATIENT
  Age: 29 Year
  Sex: Female

DRUGS (4)
  1. CYCLOSPORINE [Suspect]
     Indication: AUTOIMMUNE HEPATITIS
  2. URSODIOL [Suspect]
     Indication: AUTOIMMUNE HEPATITIS
     Dosage: UNK
  3. AZATHIOPRINE [Suspect]
     Indication: AUTOIMMUNE HEPATITIS
  4. PREDNISOLONE [Concomitant]

REACTIONS (2)
  - ABORTION [None]
  - DRUG EXPOSURE DURING PREGNANCY [None]
